FAERS Safety Report 5319902-7 (Version None)
Quarter: 2007Q2

REPORT INFORMATION
  Report Type: 
  Country: None (occurrence: None)
  Receive Date: 20070503
  Receipt Date: 20070427
  Transmission Date: 20071010
  Serious: Yes (Other)
  Sender: FDA-Public Use
  Company Number: 2007-02097

PATIENT
  Age: 5 Year
  Sex: Male

DRUGS (6)
  1. TOBRAMYCIN SULFATE [Suspect]
     Indication: PSEUDOMONAS INFECTION
     Dosage: SEE IMAGE
     Route: 055
  2. PANCREATIC ENZYMES [Concomitant]
  3. MULTIVITAMINS (ERGOCALCIFEROL, RETINOL, RIBOFLAVIN, NICOTINAMIDE, PANT [Concomitant]
  4. ALBUTEROL [Concomitant]
  5. CROMOLYN SODIUM (CROMOGLICATE SODIUM) [Concomitant]
  6. PULMOZYME [Concomitant]

REACTIONS (2)
  - BRONCHOSPASM [None]
  - EOSINOPHILIA [None]
